FAERS Safety Report 5092858-0 (Version None)
Quarter: 2006Q3

REPORT INFORMATION
  Report Type: 
  Country: None (occurrence: None)
  Receive Date: 20060828
  Receipt Date: 20060814
  Transmission Date: 20061208
  Serious: Yes (Death, Hospitalization)
  Sender: FDA-Public Use
  Company Number: 2006CT000697

PATIENT
  Age: 65 Year
  Sex: Female
  Weight: 71.6683 kg

DRUGS (8)
  1. VENTAVIS [Suspect]
     Indication: PULMONARY HYPERTENSION
     Dosage: 5 UG; 5XD; INH
     Route: 055
     Dates: start: 20060310, end: 20060814
  2. K-DUR 10 [Concomitant]
  3. ZAROSOLYN [Concomitant]
  4. LASIX [Concomitant]
  5. MUCINEX [Concomitant]
  6. DIGOXIN [Concomitant]
  7. HUMULIN [Concomitant]
  8. MINOCIN [Concomitant]

REACTIONS (5)
  - DYSPNOEA [None]
  - INFECTED SKIN ULCER [None]
  - RESPIRATORY TRACT CONGESTION [None]
  - SINUS CONGESTION [None]
  - SUDDEN DEATH [None]
